FAERS Safety Report 7128773-8 (Version None)
Quarter: 2010Q4

REPORT INFORMATION
  Report Type: 
  Country: None (occurrence: None)
  Receive Date: 20101116
  Receipt Date: 20101101
  Transmission Date: 20110411
  Serious: Yes (Death)
  Sender: FDA-Public Use
  Company Number: AMAG201000396

PATIENT
  Age: 71 Year
  Sex: Male
  Weight: 90.7 kg

DRUGS (19)
  1. FERAHEME [Suspect]
     Indication: IRON DEFICIENCY ANAEMIA
     Dosage: 510 MG, SINGLE, INTRAVENOUS ; 510 MG, SINGLE, INTRAVENOUS
     Route: 042
     Dates: start: 20101022, end: 20101022
  2. FERAHEME [Suspect]
     Indication: IRON DEFICIENCY ANAEMIA
     Dosage: 510 MG, SINGLE, INTRAVENOUS ; 510 MG, SINGLE, INTRAVENOUS
     Route: 042
     Dates: start: 20101101, end: 20101101
  3. DETROL LA [Concomitant]
  4. CARDURA [Concomitant]
  5. GABAPENTIN [Concomitant]
  6. AMLODIPINE [Concomitant]
  7. NOVOLOG [Concomitant]
  8. CALCITROL (CALCIUM CARBONATE, ERGOCALCIFEROL, RETINOL) [Concomitant]
  9. PLAVIX [Concomitant]
  10. LOVASTATIN [Concomitant]
  11. INSULIN GLARGINE (INSULIN GLARGINE) [Concomitant]
  12. FUROSEMIDE [Concomitant]
  13. VITAMIN B12 (HYDROXOCOBALAMIN) [Concomitant]
  14. AMANTADINE HCL [Concomitant]
  15. MIRAPEX [Concomitant]
  16. PAXIL [Concomitant]
  17. POTASSIUM CHLORIDE [Concomitant]
  18. CARBIDOPA W/LEVODOPA (CARBIDOPA, LEVODOPA) [Concomitant]
  19. COREG [Concomitant]

REACTIONS (10)
  - ANAPHYLACTIC REACTION [None]
  - BLOOD PRESSURE IMMEASURABLE [None]
  - BLOOD PRESSURE SYSTOLIC INCREASED [None]
  - CARDIO-RESPIRATORY ARREST [None]
  - CHEST DISCOMFORT [None]
  - DYSPNOEA [None]
  - FEELING ABNORMAL [None]
  - MUSCLE TWITCHING [None]
  - PULSE ABSENT [None]
  - UNRESPONSIVE TO STIMULI [None]
